FAERS Safety Report 5363113-6 (Version None)
Quarter: 2007Q2

REPORT INFORMATION
  Report Type: 
  Country: None (occurrence: None)
  Receive Date: 20070615
  Receipt Date: 20070601
  Transmission Date: 20071010
  Serious: Yes (Life-Threatening)
  Sender: FDA-Public Use
  Company Number: 2007P1000186

PATIENT
  Age: 48 Year
  Sex: Female

DRUGS (4)
  1. BUSULFAN (BUSULFAN) [Suspect]
     Indication: STEM CELL TRANSPLANT
     Dosage: 5.3 ML; QID; IV
     Route: 042
     Dates: start: 20070222, end: 20070225
  2. HEPARIN SODIUM [Suspect]
     Indication: DRUG USE FOR UNKNOWN INDICATION
     Dates: end: 20070305
  3. CYCLOPHOSPHAMIDE [Concomitant]
  4. PHENYTOIN [Concomitant]

REACTIONS (11)
  - ABDOMINAL PAIN [None]
  - BLOOD BILIRUBIN INCREASED [None]
  - BONE MARROW TRANSPLANT [None]
  - CARDIAC FAILURE [None]
  - ENGRAFTMENT SYNDROME [None]
  - HAEMATEMESIS [None]
  - HEPATIC FUNCTION ABNORMAL [None]
  - INFUSION RELATED REACTION [None]
  - INTERSTITIAL LUNG DISEASE [None]
  - PYREXIA [None]
  - THROMBOTIC MICROANGIOPATHY [None]
